FAERS Safety Report 16414886 (Version 1)
Quarter: 2019Q3

REPORT INFORMATION
  Report Type: Spontaneous
  Country: US (occurrence: US)
  Receive Date: 20190610
  Receipt Date: 20190610
  Transmission Date: 20191004
  Serious: Yes (Hospitalization)
  Sender: FDA-Public Use
  Company Number: None

PATIENT
  Age: 33 Year
  Sex: Male
  Weight: 84.8 kg

DRUGS (1)
  1. CLOZAPINE. [Suspect]
     Active Substance: CLOZAPINE
     Indication: SCHIZOPHRENIA
     Route: 048
     Dates: start: 20190117, end: 20190207

REACTIONS (8)
  - Cardiac murmur [None]
  - Nodal rhythm [None]
  - Troponin increased [None]
  - Chest pain [None]
  - Brain natriuretic peptide increased [None]
  - Pericardial effusion [None]
  - Bradycardia [None]
  - Ejection fraction decreased [None]

NARRATIVE: CASE EVENT DATE: 20190207
